FAERS Safety Report 5094461-5 (Version None)
Quarter: 2006Q3

REPORT INFORMATION
  Report Type: 
  Country: None (occurrence: None)
  Receive Date: 20060830
  Receipt Date: 20060814
  Transmission Date: 20061208
  Serious: Yes (Hospitalization)
  Sender: FDA-Public Use
  Company Number: FR200608003191

PATIENT
  Age: 79 Year
  Sex: Female

DRUGS (7)
  1. FORTEO [Suspect]
     Indication: OSTEOPOROSIS
     Dosage: SEE IMAGE
     Route: 058
     Dates: start: 20060515, end: 20060718
  2. FORTEO [Suspect]
     Indication: OSTEOPOROSIS
     Dosage: SEE IMAGE
     Route: 058
     Dates: start: 20060801
  3. FORTEO [Concomitant]
  4. OSSOPAN (DURAPATITE) [Concomitant]
  5. ACETAMINOPHEN [Concomitant]
  6. LASIX [Concomitant]
  7. VALSARTAN [Concomitant]

REACTIONS (10)
  - ANXIETY [None]
  - ASTHENIA [None]
  - DECREASED APPETITE [None]
  - FATIGUE [None]
  - HYPERTENSION [None]
  - HYPONATRAEMIA [None]
  - MUSCLE SPASMS [None]
  - NAUSEA [None]
  - SUFFOCATION FEELING [None]
  - VERTIGO [None]
